FAERS Safety Report 9661019 (Version 1)
Quarter: 2013Q4

REPORT INFORMATION
  Report Type: Spontaneous
  Country: GB (occurrence: None)
  Receive Date: 20131030
  Receipt Date: 20131030
  Transmission Date: 20140711
  Serious: Yes (Other)
  Sender: FDA-Public Use
  Company Number: GB-AIKEM-000200

PATIENT
  Age: 38 Year
  Sex: Female

DRUGS (10)
  1. QUETIAPINE [Suspect]
     Indication: LEARNING DISABILITY
     Dosage: 50MG, 2 TIMES PER 1 DAY ORAL
     Route: 048
  2. MICROGYN (MIRCOGYN) [Suspect]
     Indication: MENORRHAGIA
     Dosage: 1 DOSAGE- 1 TIME PER 1 DAY ORAL
     Route: 048
     Dates: end: 20131008
  3. CETRIZINE (CETRIZINE) [Concomitant]
  4. SUMATRIPTAIN (SUMATRIPTAIN) [Concomitant]
  5. CO-CODAMOL) (CO-CODAMOL) [Concomitant]
  6. LANSOPRAZOL (LANSOPRAZOL) [Concomitant]
  7. CARBAMAZEPINE (CARBAMZEPINE) [Concomitant]
  8. PYRIDOXINE [Concomitant]
  9. HYDROCHLORIDE (PYRIDOXINE HYDROCHLORIDE) [Concomitant]
  10. IBUPROFEN (IBUPROFEN) [Concomitant]

REACTIONS (2)
  - Deep vein thrombosis [None]
  - Off label use [None]
